FAERS Safety Report 7752337-6 (Version None)
Quarter: 2011Q3

REPORT INFORMATION
  Report Type: 
  Country: None (occurrence: None)
  Receive Date: 20110915
  Receipt Date: 20110902
  Transmission Date: 20111222
  Serious: Yes (Hospitalization)
  Sender: FDA-Public Use
  Company Number: DE-ELI_LILLY_AND_COMPANY-DE201109000928

PATIENT
  Age: 72 Year
  Sex: Female

DRUGS (8)
  1. NOVO RAPID [Concomitant]
  2. RAMIPRIL [Concomitant]
     Dosage: 5 DF, UNK
  3. BISOPROLOL FUMARATE [Concomitant]
     Dosage: UNK, QD
  4. PANTOPRAZOLE [Concomitant]
     Dosage: 20 DF, QD
  5. MARCUMAR [Concomitant]
  6. CYMBALTA [Suspect]
     Indication: PAIN
     Dosage: 30 MG, UNK
     Dates: start: 20110822, end: 20110825
  7. TORSEMIDE [Concomitant]
     Dosage: 10 DF, QD
  8. IBUPROFEN [Concomitant]
     Dosage: 600 DF, QD

REACTIONS (3)
  - ASTHENIA [None]
  - SOMNOLENCE [None]
  - EATING DISORDER [None]
